FAERS Safety Report 15694975 (Version 1)
Quarter: 2018Q4

REPORT INFORMATION
  Report Type: Spontaneous
  Country: CN (occurrence: CN)
  Receive Date: 20181206
  Receipt Date: 20181206
  Transmission Date: 20190205
  Serious: Yes (Other)
  Sender: FDA-Public Use
  Company Number: CN-ASTRAZENECA-2018SF59796

PATIENT
  Sex: Male
  Weight: 70 kg

DRUGS (5)
  1. ESOMEPRAZOLE SODIUM. [Suspect]
     Active Substance: ESOMEPRAZOLE SODIUM
     Indication: CEREBRAL INFARCTION
     Route: 041
     Dates: start: 20181005, end: 20181009
  2. ROSUVASTATIN CALCIUM. [Suspect]
     Active Substance: ROSUVASTATIN CALCIUM
     Indication: CEREBRAL INFARCTION
     Route: 045
     Dates: start: 20181005, end: 20181009
  3. CLOPIDOGREL SULFATE [Suspect]
     Active Substance: CLOPIDOGREL BISULFATE
     Indication: CEREBRAL INFARCTION
     Route: 045
     Dates: start: 20181005, end: 20181009
  4. FUROSEMIDE. [Suspect]
     Active Substance: FUROSEMIDE
     Indication: CEREBRAL INFARCTION
     Route: 042
     Dates: start: 20181005, end: 20181009
  5. ROSUVASTATIN CALCIUM. [Suspect]
     Active Substance: ROSUVASTATIN CALCIUM
     Indication: CEREBRAL INFARCTION
     Route: 048
     Dates: start: 20181005, end: 20181009

REACTIONS (4)
  - Blood glucose increased [Not Recovered/Not Resolved]
  - Hepatic function abnormal [Not Recovered/Not Resolved]
  - Blood electrolytes abnormal [Not Recovered/Not Resolved]
  - Renal impairment [Not Recovered/Not Resolved]
